FAERS Safety Report 15971249 (Version 3)
Quarter: 2020Q3

REPORT INFORMATION
  Report Type: Spontaneous
  Country: CZ (occurrence: CZ)
  Receive Date: 20190215
  Receipt Date: 20200703
  Transmission Date: 20201102
  Serious: Yes (Death, Hospitalization)
  Sender: FDA-Public Use
  Company Number: PHHY2019CZ034296

PATIENT
  Age: 65 Year
  Sex: Female

DRUGS (5)
  1. ARTRODAR [Suspect]
     Active Substance: DIACEREIN
     Indication: PRODUCT USED FOR UNKNOWN INDICATION
     Dosage: 80 CAPSULES
     Route: 065
  2. TARKA [Suspect]
     Active Substance: TRANDOLAPRIL\VERAPAMIL HYDROCHLORIDE
     Indication: PRODUCT USED FOR UNKNOWN INDICATION
     Dosage: UNK 42 TABLETS
     Route: 065
  3. TULIP (ATORVASTATIN) [Suspect]
     Active Substance: ATORVASTATIN
     Indication: PRODUCT USED FOR UNKNOWN INDICATION
     Dosage: 80 TABLETS
     Route: 065
  4. MOXOGAMMA [Suspect]
     Active Substance: MOXONIDINE
     Indication: PRODUCT USED FOR UNKNOWN INDICATION
     Dosage: 0.2 G, 50 TABLETS
     Route: 065
  5. EBRANTIL [Suspect]
     Active Substance: URAPIDIL
     Indication: PRODUCT USED FOR UNKNOWN INDICATION
     Dosage: 7.5 G, 250 CAPSULES
     Route: 065

REACTIONS (10)
  - Drug abuse [Unknown]
  - Toxicity to various agents [Fatal]
  - Cardiomyopathy [Fatal]
  - Metabolic acidosis [Unknown]
  - Rhabdomyolysis [Fatal]
  - Loss of consciousness [Fatal]
  - Cardiogenic shock [Fatal]
  - Distributive shock [Fatal]
  - Acute kidney injury [Fatal]
  - Overdose [Fatal]
